FAERS Safety Report 5449790-X (Version None)
Quarter: 2007Q3

REPORT INFORMATION
  Report Type: 
  Country: None (occurrence: None)
  Receive Date: 20070910
  Receipt Date: 20070831
  Transmission Date: 20080115
  Serious: Yes (Other)
  Sender: FDA-Public Use
  Company Number: MEDI-0005479 (1)

PATIENT
  Sex: Male

DRUGS (5)
  1. SYNAGIS [Suspect]
     Indication: ANTIVIRAL PROPHYLAXIS
     Dosage: 100 MG, INTRAMUSCULAR; 70 MG, INTRAMUSCULAR; 93 MG, INTRAMUSCULAR
     Route: 030
     Dates: start: 20021031, end: 20030227
  2. SYNAGIS [Suspect]
     Indication: ANTIVIRAL PROPHYLAXIS
     Dosage: 100 MG, INTRAMUSCULAR; 70 MG, INTRAMUSCULAR; 93 MG, INTRAMUSCULAR
     Route: 030
     Dates: start: 20021031
  3. SYNAGIS [Suspect]
     Indication: ANTIVIRAL PROPHYLAXIS
     Dosage: 100 MG, INTRAMUSCULAR; 70 MG, INTRAMUSCULAR; 93 MG, INTRAMUSCULAR
     Route: 030
     Dates: start: 20021128
  4. SYNAGIS [Suspect]
     Indication: ANTIVIRAL PROPHYLAXIS
     Dosage: 100 MG, INTRAMUSCULAR; 70 MG, INTRAMUSCULAR; 93 MG, INTRAMUSCULAR
     Route: 030
     Dates: start: 20021226
  5. SYNAGIS [Suspect]
     Indication: ANTIVIRAL PROPHYLAXIS
     Dosage: 100 MG, INTRAMUSCULAR; 70 MG, INTRAMUSCULAR; 93 MG, INTRAMUSCULAR
     Route: 030
     Dates: start: 20030130

REACTIONS (1)
  - NO ADVERSE DRUG REACTION [None]
